FAERS Safety Report 5632695-9 (Version None)
Quarter: 2008Q1

REPORT INFORMATION
  Report Type: 
  Country: None (occurrence: None)
  Receive Date: 20080220
  Receipt Date: 20080212
  Transmission Date: 20080703
  Serious: Yes (Other)
  Sender: FDA-Public Use
  Company Number: JP-PFIZER INC-2008014789

PATIENT
  Age: 60 Year
  Sex: Female

DRUGS (2)
  1. LIPITOR [Suspect]
     Indication: HYPERCHOLESTEROLAEMIA
     Route: 048
     Dates: start: 20071211, end: 20080211
  2. ALOSENN [Concomitant]
     Dosage: DAILY DOSE:1GRAM-FREQ:DAILY
     Route: 048
     Dates: start: 20071201

REACTIONS (1)
  - HYPOAESTHESIA [None]
